FAERS Safety Report 24782940 (Version 1)
Quarter: 2024Q4

REPORT INFORMATION
  Report Type: Other
  Country: BR (occurrence: BR)
  Receive Date: 20241227
  Receipt Date: 20241227
  Transmission Date: 20250114
  Serious: Yes (Hospitalization)
  Sender: KNIGHT THERAPEUTICS
  Company Number: BR-Knight Therapeutics (USA) Inc.-2167906

PATIENT

DRUGS (1)
  1. IMPAVIDO [Suspect]
     Active Substance: MILTEFOSINE
     Indication: Mucocutaneous leishmaniasis

REACTIONS (1)
  - Chikungunya virus infection [Unknown]
